FAERS Safety Report 6099783-7 (Version None)
Quarter: 2009Q1

REPORT INFORMATION
  Report Type: 
  Country: None (occurrence: None)
  Receive Date: 20090303
  Receipt Date: 20090217
  Transmission Date: 20090719
  Serious: Yes (Other)
  Sender: FDA-Public Use
  Company Number: PHEH2009US01787

PATIENT
  Sex: Female

DRUGS (1)
  1. ZELNORM [Suspect]
     Dosage: UNK
     Dates: start: 20030301

REACTIONS (6)
  - CARDIAC DISORDER [None]
  - CARDIAC OPERATION [None]
  - CHEST PAIN [None]
  - INJURY [None]
  - SURGERY [None]
  - VASCULAR CAUTERISATION [None]
